FAERS Safety Report 18203736 (Version 1)
Quarter: 2020Q3

REPORT INFORMATION
  Report Type: Spontaneous
  Country: FR (occurrence: FR)
  Receive Date: 20200827
  Receipt Date: 20200827
  Transmission Date: 20201103
  Serious: Yes (Hospitalization, Other)
  Sender: FDA-Public Use
  Company Number: FR-MYLANLABS-2020M1073307

PATIENT
  Age: 48 Year
  Sex: Female

DRUGS (5)
  1. LOXAPAC                            /00401802/ [Suspect]
     Active Substance: LOXAPINE SUCCINATE
     Indication: PRODUCT USED FOR UNKNOWN INDICATION
     Dosage: UNK (NON RENSEIGNEE)
     Route: 048
     Dates: start: 20200716, end: 20200716
  2. DEFANYL [Suspect]
     Active Substance: AMOXAPINE
     Indication: PRODUCT USED FOR UNKNOWN INDICATION
     Dosage: UNK (NON RENSEIGNEE)
     Route: 048
     Dates: start: 20200716, end: 20200716
  3. MIRTAZAPINE. [Suspect]
     Active Substance: MIRTAZAPINE
     Indication: PRODUCT USED FOR UNKNOWN INDICATION
     Dosage: UNK (NON RENSEIGNEE)
     Route: 048
     Dates: start: 20200716, end: 20200716
  4. VALIUM [Suspect]
     Active Substance: DIAZEPAM
     Indication: PRODUCT USED FOR UNKNOWN INDICATION
     Dosage: UNK (NON RENSEIGNEE)
     Route: 048
     Dates: start: 20200716, end: 20200716
  5. ALPRAZOLAM. [Suspect]
     Active Substance: ALPRAZOLAM
     Indication: PRODUCT USED FOR UNKNOWN INDICATION
     Dosage: UNK (NON RENSEIGNEE)
     Route: 048
     Dates: start: 20200716, end: 20200716

REACTIONS (5)
  - Intentional overdose [Not Recovered/Not Resolved]
  - Suicide attempt [Unknown]
  - Coma [Not Recovered/Not Resolved]
  - Hypoxia [Not Recovered/Not Resolved]
  - Toxicity to various agents [Not Recovered/Not Resolved]

NARRATIVE: CASE EVENT DATE: 20200716
